FAERS Safety Report 4788871-0 (Version None)
Quarter: 2005Q4

REPORT INFORMATION
  Report Type: 
  Country: None (occurrence: None)
  Receive Date: 20051004
  Receipt Date: 20050923
  Transmission Date: 20060501
  Serious: Yes (Hospitalization)
  Sender: FDA-Public Use
  Company Number: 2005132663

PATIENT
  Sex: Male

DRUGS (1)
  1. CELEBREX [Suspect]
     Indication: ILL-DEFINED DISORDER

REACTIONS (5)
  - ASTHENIA [None]
  - AUTOIMMUNE DISORDER [None]
  - NEUTROPENIA [None]
  - SUBCUTANEOUS HAEMATOMA [None]
  - THROMBOCYTOPENIA [None]
